FAERS Safety Report 7677667 (Version 6)
Quarter: 2012Q4

REPORT INFORMATION
  Report Type: 
  Country: CA (occurrence: CA)
  Receive Date: 20101122
  Receipt Date: 20121227
  Transmission Date: 20130627
  Serious: Yes (Hospitalization)
  Sender: FDA-Public Use
  Company Number: PHHO2010CA17316

PATIENT
  Age: 17 Year
  Sex: Female

DRUGS (4)
  1. ACZ885 [Suspect]
     Indication: JUVENILE ARTHRITIS
     Dosage: 4mg/kg Q4W
     Route: 058
     Dates: start: 20101029, end: 20101029
  2. NO TREATMENT RECEIVED [Suspect]
     Indication: JUVENILE ARTHRITIS
     Dosage: NO TREATMENT
  3. BACTRIM [Suspect]
     Dosage: UNK
     Dates: start: 20101105, end: 20101113
  4. ANAKINRA [Concomitant]
     Dosage: 100 mg, QD
     Dates: start: 20101203

REACTIONS (18)
  - Histiocytosis haematophagic [Recovered/Resolved]
  - Pyrexia [Recovered/Resolved]
  - Rash [Recovered/Resolved]
  - Liver function test abnormal [Recovered/Resolved]
  - Serum ferritin increased [Recovered/Resolved]
  - White blood cell count decreased [Recovered/Resolved]
  - Platelet count decreased [Recovered/Resolved]
  - Blood triglycerides increased [Recovered/Resolved]
  - Fibrin D dimer increased [Recovered/Resolved]
  - C-reactive protein increased [Recovered/Resolved]
  - Blood lactate dehydrogenase increased [Unknown]
  - Escherichia urinary tract infection [Recovered/Resolved]
  - Abdominal pain upper [Recovered/Resolved]
  - Pollakiuria [Recovered/Resolved]
  - Dysuria [Recovered/Resolved]
  - Hypersensitivity [Unknown]
  - Erythema [Unknown]
  - Pruritus [Unknown]
